FAERS Safety Report 21299435 (Version 1)
Quarter: 2022Q3

REPORT INFORMATION
  Report Type: Spontaneous
  Country: US (occurrence: US)
  Receive Date: 20220906
  Receipt Date: 20220906
  Transmission Date: 20221027
  Serious: No
  Sender: FDA-Public Use
  Company Number: US-Dermavant-000132

PATIENT
  Age: 39 Year
  Sex: Female

DRUGS (1)
  1. TAPINAROF [Suspect]
     Active Substance: TAPINAROF
     Indication: Rash
     Dates: start: 20220819, end: 20220819

REACTIONS (2)
  - Application site pain [Recovering/Resolving]
  - Rash [Recovering/Resolving]

NARRATIVE: CASE EVENT DATE: 20220819
